FAERS Safety Report 9027779 (Version 2)
Quarter: 2013Q1

REPORT INFORMATION
  Report Type: Spontaneous
  Country: US (occurrence: US)
  Receive Date: 20130124
  Receipt Date: 20130218
  Transmission Date: 20140127
  Serious: No
  Sender: FDA-Public Use
  Company Number: US-009507513-1301USA009261

PATIENT
  Sex: Female
  Weight: 63.9 kg

DRUGS (1)
  1. NEXPLANON [Suspect]
     Dosage: UNK, 1 ROD PER EVERY THREE YEARS
     Route: 059
     Dates: start: 20130115

REACTIONS (3)
  - Device difficult to use [Unknown]
  - Product quality issue [Unknown]
  - No adverse event [Unknown]
